FAERS Safety Report 8581671-5 (Version None)
Quarter: 2012Q3

REPORT INFORMATION
  Report Type: 
  Country: None (occurrence: None)
  Receive Date: 20120727
  Receipt Date: 20120716
  Transmission Date: 20120928
  Serious: Yes (Other)
  Sender: FDA-Public Use
  Company Number: 2012AP002185

PATIENT
  Age: 26 Year
  Sex: Female

DRUGS (3)
  1. BACLOFEN [Concomitant]
  2. RISPERIDONE [Suspect]
     Indication: PSYCHOTIC DISORDER
  3. ZIPRASIDONE HYDROCHLORIDE [Suspect]
     Indication: PSYCHOTIC DISORDER

REACTIONS (4)
  - DELUSION [None]
  - ABULIA [None]
  - MUSCLE SPASTICITY [None]
  - CONDITION AGGRAVATED [None]
